FAERS Safety Report 23544028 (Version 1)
Quarter: 2024Q1

REPORT INFORMATION
  Report Type: Spontaneous
  Country: US (occurrence: None)
  Receive Date: 20240216
  Receipt Date: 20240216
  Transmission Date: 20240410
  Serious: Yes (Death)
  Sender: FDA-Public Use
  Company Number: None

PATIENT
  Age: 72 Year
  Sex: Female
  Weight: 58 kg

DRUGS (1)
  1. TECVAYLI [Suspect]
     Active Substance: TECLISTAMAB-CQYV
     Indication: Plasma cell myeloma refractory
     Dosage: OTHER FREQUENCY : AS ORDERED;?
     Route: 058
     Dates: start: 20230912, end: 20230920

REACTIONS (1)
  - Death [None]

NARRATIVE: CASE EVENT DATE: 20231002
